FAERS Safety Report 5524287-7 (Version None)
Quarter: 2007Q4

REPORT INFORMATION
  Report Type: 
  Country: None (occurrence: None)
  Receive Date: 20071121
  Receipt Date: 20071114
  Transmission Date: 20080405
  Serious: Yes (Other)
  Sender: FDA-Public Use
  Company Number: US-PFIZER INC-2007093992

PATIENT
  Sex: Male
  Weight: 88.5 kg

DRUGS (2)
  1. ZYRTEC-D 12 HOUR [Suspect]
     Indication: RHINITIS
     Dosage: TEXT:5 MG/120 MG PRN
  2. ZYRTEC-D 12 HOUR [Suspect]
     Indication: HYPERSENSITIVITY

REACTIONS (11)
  - ABNORMAL BEHAVIOUR [None]
  - CHEST DISCOMFORT [None]
  - CORONARY ARTERY DISEASE [None]
  - DRUG INEFFECTIVE [None]
  - FEELING ABNORMAL [None]
  - HYPOAESTHESIA [None]
  - MALAISE [None]
  - MOBILITY DECREASED [None]
  - PARAESTHESIA [None]
  - PARANASAL SINUS DISCOMFORT [None]
  - VOMITING [None]
